FAERS Safety Report 9876756 (Version 2)
Quarter: 2014Q1

REPORT INFORMATION
  Report Type: Other
  Country: US (occurrence: US)
  Receive Date: 20140206
  Receipt Date: 20140206
  Transmission Date: 20141002
  Serious: No
  Sender: FDA-Public Use
  Company Number: US-ACORDA-ACO_37309_2013

PATIENT
  Age: 45 Year
  Sex: Female

DRUGS (3)
  1. AMPYRA [Suspect]
     Indication: FATIGUE
     Dosage: 10 MG, BID
     Route: 048
     Dates: end: 201006
  2. AMPYRA [Suspect]
     Indication: MULTIPLE SCLEROSIS
     Dosage: 10 MG, BID
     Route: 048
     Dates: end: 201006
  3. AUBAGIO [Concomitant]
     Indication: PRODUCT USED FOR UNKNOWN INDICATION
     Dosage: UNK
     Route: 065
     Dates: start: 201303

REACTIONS (3)
  - Alopecia [Unknown]
  - Diarrhoea [Unknown]
  - Candida infection [Unknown]
